FAERS Safety Report 18933668 (Version 1)
Quarter: 2021Q1

REPORT INFORMATION
  Report Type: Spontaneous
  Country: US (occurrence: US)
  Receive Date: 20210224
  Receipt Date: 20210224
  Transmission Date: 20210420
  Serious: No
  Sender: FDA-Public Use
  Company Number: None

PATIENT
  Age: 41 Year
  Sex: Female
  Weight: 62.1 kg

DRUGS (1)
  1. BAMLANIVIMAB. [Suspect]
     Active Substance: BAMLANIVIMAB
     Indication: COVID-19
     Dosage: ?          OTHER FREQUENCY:1 DOSE;?
     Route: 042
     Dates: start: 20210224, end: 20210224

REACTIONS (3)
  - Sensation of foreign body [None]
  - Wheezing [None]
  - Cough [None]

NARRATIVE: CASE EVENT DATE: 20210224
